FAERS Safety Report 21600589 (Version 1)
Quarter: 2022Q4

REPORT INFORMATION
  Report Type: Spontaneous
  Country: US (occurrence: US)
  Receive Date: 20221116
  Receipt Date: 20221116
  Transmission Date: 20230113
  Serious: No
  Sender: FDA-Public Use
  Company Number: US-BRISTOL-MYERS SQUIBB COMPANY-2022-100949

PATIENT
  Age: 60 Year
  Sex: Male

DRUGS (2)
  1. REVLIMID [Suspect]
     Active Substance: LENALIDOMIDE
     Indication: Plasma cell myeloma
     Dosage: FREQUENCY: TAKE 1 CAPSULE BY MOUTH EVERY DAY WITH 2.5MG CAPSULE FOR 7.5MG TOTAL DAILY DOSE FOR 21 DA
     Route: 048
     Dates: start: 20210507
  2. REVLIMID [Suspect]
     Active Substance: LENALIDOMIDE
     Dosage: FREQUENCY: TAKE 1 CAPSULE BY MOUTH EVERY DAY WITH 2.5MG CAPSULE FOR 7.5MG TOTAL DAILY DOSE FOR 21 DA
     Route: 048
     Dates: start: 20210507

REACTIONS (2)
  - Product distribution issue [Unknown]
  - Product dose omission issue [Unknown]
